FAERS Safety Report 9617445 (Version 2)
Quarter: 2013Q4

REPORT INFORMATION
  Report Type: Report from Study
  Country: US (occurrence: US)
  Receive Date: 20131011
  Receipt Date: 20131011
  Transmission Date: 20140711
  Serious: Yes (Hospitalization)
  Sender: FDA-Public Use
  Company Number: US-ABBVIE-13P-163-1139745-00

PATIENT
  Sex: Male

DRUGS (4)
  1. HUMIRA [Suspect]
     Indication: CROHN^S DISEASE
     Dates: start: 20130821
  2. ASACOL [Concomitant]
  3. PREDNISONE [Concomitant]
     Indication: CROHN^S DISEASE
  4. VICODIN [Concomitant]
     Indication: PAIN
     Dosage: 7.5/300 MG

REACTIONS (2)
  - Anal fissure [Unknown]
  - Clostridium difficile infection [Not Recovered/Not Resolved]
